FAERS Safety Report 18606121 (Version 1)
Quarter: 2020Q4

REPORT INFORMATION
  Report Type: Spontaneous
  Country: FR (occurrence: FR)
  Receive Date: 20201211
  Receipt Date: 20201211
  Transmission Date: 20210114
  Serious: Yes (Hospitalization)
  Sender: FDA-Public Use
  Company Number: NVSC2020FR323674

PATIENT
  Age: 47 Year
  Sex: Male
  Weight: 87.6 kg

DRUGS (10)
  1. LARGACTIL [Suspect]
     Active Substance: CHLORPROMAZINE
     Indication: PROPHYLAXIS OF NAUSEA AND VOMITING
     Dosage: 12.5 MG, QD
     Route: 041
     Dates: start: 20201022, end: 20201027
  2. ORAMORPH [Concomitant]
     Active Substance: MORPHINE SULFATE
     Indication: PRODUCT USED FOR UNKNOWN INDICATION
     Dosage: 5 MG, QD (4 GOUTTES SOIT 5 MG)
     Route: 048
  3. INNOHEP [Concomitant]
     Active Substance: TINZAPARIN SODIUM
     Indication: PRODUCT USED FOR UNKNOWN INDICATION
     Dosage: 15000 IU, QD
     Route: 048
  4. ZALASTA [Suspect]
     Active Substance: OLANZAPINE
     Indication: PROPHYLAXIS OF NAUSEA AND VOMITING
     Dosage: 10 MG, QD (LE SOIR)
     Route: 048
     Dates: start: 20201019, end: 20201021
  5. METOCLOPRAMIDE. [Suspect]
     Active Substance: METOCLOPRAMIDE
     Indication: PROPHYLAXIS OF NAUSEA AND VOMITING
     Dosage: 10 MG, PRN (AS NECESSARY)
     Route: 048
     Dates: start: 20201010, end: 20201018
  6. PROZAC [Concomitant]
     Active Substance: FLUOXETINE HYDROCHLORIDE
     Indication: PRODUCT USED FOR UNKNOWN INDICATION
     Dosage: 20 MG, QD (LE SOIR)
     Route: 048
  7. ZOPHREN [Suspect]
     Active Substance: ONDANSETRON
     Indication: PROPHYLAXIS OF NAUSEA AND VOMITING
     Dosage: 8 MG, PRN (AS NECESSARY)
     Route: 042
     Dates: start: 20201010
  8. LARGACTIL [Suspect]
     Active Substance: CHLORPROMAZINE
     Indication: NAUSEA
     Dosage: 25 MG, QD (IN AMPOULE)
     Route: 041
     Dates: start: 20201027, end: 20201029
  9. XANAX [Concomitant]
     Active Substance: ALPRAZOLAM
     Indication: PRODUCT USED FOR UNKNOWN INDICATION
     Dosage: 0.25 MG, QD (1/2 CP LE SOIR)
     Route: 048
  10. FORLAX [Concomitant]
     Active Substance: POLYETHYLENE GLYCOL 4000
     Indication: CONSTIPATION
     Dosage: 1 DF, PRN (ASNECESSARY) (1 ? 2 SACHET(S) LE MATIN SI CONSTIPATION)
     Route: 048

REACTIONS (1)
  - Neutropenia [Recovered/Resolved]

NARRATIVE: CASE EVENT DATE: 20201027
